FAERS Safety Report 18317034 (Version 1)
Quarter: 2020Q3

REPORT INFORMATION
  Report Type: Spontaneous
  Country: US (occurrence: US)
  Receive Date: 20200928
  Receipt Date: 20200928
  Transmission Date: 20201103
  Serious: Yes (Other)
  Sender: FDA-Public Use
  Company Number: US-BEH-2020122748

PATIENT
  Age: 17 Month
  Sex: Male

DRUGS (1)
  1. HIZENTRA [Suspect]
     Active Substance: HUMAN IMMUNOGLOBULIN G
     Indication: IMMUNODEFICIENCY COMMON VARIABLE
     Dosage: 15 GRAM, QOW
     Route: 058
     Dates: start: 20200220

REACTIONS (2)
  - Escherichia test positive [Unknown]
  - Campylobacter test positive [Unknown]

NARRATIVE: CASE EVENT DATE: 20200911
